FAERS Safety Report 16011977 (Version 1)
Quarter: 2019Q1

REPORT INFORMATION
  Report Type: Spontaneous
  Country: US (occurrence: US)
  Receive Date: 20190227
  Receipt Date: 20190227
  Transmission Date: 20190418
  Serious: Yes (Other)
  Sender: FDA-Public Use
  Company Number: US-BAYER-2019-040850

PATIENT

DRUGS (5)
  1. CORTISONE [Concomitant]
     Active Substance: CORTISONE\HYDROCORTISONE
  2. CODEINE [Suspect]
     Active Substance: CODEINE
  3. DIPHENHYDRAMINE HYDROCHLORIDE. [Concomitant]
     Active Substance: DIPHENHYDRAMINE HYDROCHLORIDE
  4. BAYER ASPIRIN [Suspect]
     Active Substance: ASPIRIN
  5. PENICILLIN [PHENOXYMETHYLPENICILLIN] [Concomitant]

REACTIONS (3)
  - Arrhythmia [Unknown]
  - Multiple allergies [Unknown]
  - Ulcer [None]
